FAERS Safety Report 7690457-5 (Version None)
Quarter: 2011Q3

REPORT INFORMATION
  Report Type: 
  Country: None (occurrence: None)
  Receive Date: 20110812
  Receipt Date: 20110728
  Transmission Date: 20111222
  Serious: Yes (Hospitalization)
  Sender: FDA-Public Use
  Company Number: 2011HGS-002417

PATIENT
  Age: 33 Year
  Sex: Female
  Weight: 75 kg

DRUGS (9)
  1. BENLYSTA [Suspect]
  2. OMEPRAZOLE [Concomitant]
  3. ESZOPICLONE [Concomitant]
  4. TRAMADOL HCL [Concomitant]
  5. BENLYSTA [Suspect]
     Indication: SYSTEMIC LUPUS ERYTHEMATOSUS
     Dosage: 10 MG/KG, 1 IN 14 D,10MG/KG, 1 IN 28 D, INTRAVENOUS DRIP
     Route: 041
     Dates: start: 20110525, end: 20110620
  6. VITAMIN D [Concomitant]
  7. ZYRTEC [Concomitant]
  8. INDOMETHACIN [Concomitant]
  9. HYDROXYZINE [Concomitant]

REACTIONS (23)
  - DEHYDRATION [None]
  - ABDOMINAL PAIN LOWER [None]
  - WEIGHT DECREASED [None]
  - BACTERIAL SEPSIS [None]
  - SWELLING FACE [None]
  - ENDOCARDITIS [None]
  - CHILLS [None]
  - URTICARIA [None]
  - ARTHRALGIA [None]
  - LOCAL SWELLING [None]
  - NECK MASS [None]
  - OROPHARYNGEAL PAIN [None]
  - NAUSEA [None]
  - HEADACHE [None]
  - GASTROINTESTINAL HAEMORRHAGE [None]
  - BLOOD CREATININE INCREASED [None]
  - RED BLOOD CELL COUNT DECREASED [None]
  - DIARRHOEA [None]
  - BLOOD UREA INCREASED [None]
  - WHITE BLOOD CELL COUNT DECREASED [None]
  - HAEMOGLOBIN DECREASED [None]
  - LYMPHOCYTE COUNT DECREASED [None]
  - HAEMATOCRIT DECREASED [None]
